FAERS Safety Report 6922172-7 (Version None)
Quarter: 2010Q3

REPORT INFORMATION
  Report Type: 
  Country: None (occurrence: None)
  Receive Date: 20100812
  Receipt Date: 20100803
  Transmission Date: 20110219
  Serious: Yes (Hospitalization)
  Sender: FDA-Public Use
  Company Number: FR-GILEAD-2010-0030837

PATIENT
  Sex: Female

DRUGS (12)
  1. ATRIPLA [Suspect]
     Route: 048
     Dates: start: 20090701, end: 20100709
  2. CLINDAMYCIN HCL [Suspect]
     Route: 042
     Dates: start: 20100630, end: 20100709
  3. MALOCIDE [Suspect]
     Route: 048
     Dates: start: 20100629, end: 20100701
  4. MALOCIDE [Suspect]
     Route: 048
     Dates: end: 20100712
  5. KEPPRA [Suspect]
     Route: 048
     Dates: start: 20100629, end: 20100706
  6. KEPPRA [Suspect]
     Route: 048
     Dates: end: 20100712
  7. TOPALGIC [Suspect]
     Route: 048
     Dates: start: 20100624, end: 20100702
  8. PRIMPERAN TAB [Suspect]
     Route: 048
     Dates: start: 20100702, end: 20100705
  9. IDARAC [Suspect]
     Route: 048
     Dates: start: 20100628, end: 20100710
  10. WELLVONE [Suspect]
     Indication: PNEUMOCYSTIS JIROVECI PNEUMONIA
     Route: 048
     Dates: start: 20100625, end: 20100702
  11. SPEACIAFOLDINE [Suspect]
     Dates: end: 20100711
  12. ATARAX [Concomitant]
     Route: 048

REACTIONS (1)
  - THROMBOCYTOPENIA [None]
